FAERS Safety Report 16588812 (Version 3)
Quarter: 2022Q1

REPORT INFORMATION
  Report Type: Spontaneous
  Country: DE (occurrence: DE)
  Receive Date: 20190718
  Receipt Date: 20220318
  Transmission Date: 20220424
  Serious: Yes (Hospitalization)
  Sender: FDA-Public Use
  Company Number: DE-TEVA-2019-DE-1077550

PATIENT
  Age: 58 Year
  Sex: Female

DRUGS (28)
  1. VALSARTAN [Suspect]
     Active Substance: VALSARTAN
     Indication: Hypertension
     Dosage: 160 MILLIGRAM DAILY; PRESCRIPTIONS IN 2014, 2016 AND 2018 DOCUMENTED
     Route: 048
     Dates: end: 2018
  2. VALSARTAN [Suspect]
     Active Substance: VALSARTAN
     Indication: Hypertension
     Dosage: 160 MILLIGRAM DAILY; PRESCRIPTION IN 2014, 2015, 2017 AND 2018 DOCUMENTED
     Route: 048
  3. VALSARTAN [Suspect]
     Active Substance: VALSARTAN
     Indication: Hypertension
     Dosage: 160 MILLIGRAM DAILY; PRESCRIPTION IN 2015 DOCUMENTED
     Route: 048
  4. VALSARTAN [Suspect]
     Active Substance: VALSARTAN
     Indication: Hypertension
     Dosage: 160 MILLIGRAM DAILY; PRESCRIPTION IN 2015 DOCUMENTED
     Route: 048
  5. Omeprazol ABZ 40mg Kapseln [Concomitant]
     Dosage: PRESCRIPTIONS FROM 2013-2016 DOCUMENTED
     Route: 065
  6. Venlafaxin Biomo 75mg [Concomitant]
     Dosage: PRESCRIBED 03-04-2013
     Route: 065
     Dates: start: 201304
  7. Omeprazol 40mg 1A Pharma [Concomitant]
     Dosage: PRESCRIBED 29-01-2013
     Route: 065
     Dates: start: 201301
  8. SPIRIVA 18UG KAPSELN [Concomitant]
     Indication: Chronic obstructive pulmonary disease
     Dosage: 18 MICROGRAM DAILY; IN THE MORNING, PRESCRIPTIONS FROM 2013-2018 DOCUMENTED
     Route: 065
     Dates: start: 2013
  9. RELVAR ELLIPTA 92UG/22UG [Concomitant]
     Indication: Chronic obstructive pulmonary disease
     Dosage: 1 DF CONTAINS 92 MICROGRAM FLUTICASONE AND 22 MICROGRAM VILANTEROL, PRESCRIPTIONS 2014  - 2018
     Route: 065
     Dates: start: 2014
  10. FENOTEROL HYDROBROMIDE\IPRATROPIUM BROMIDE [Concomitant]
     Active Substance: FENOTEROL HYDROBROMIDE\IPRATROPIUM BROMIDE
     Dosage: 1DF CONTAINS: 20 MICORGRAM IPRATROPIUM AND 50 MICORGRAM FENOTEROL, PRESCRIPTIONS FROM 2013 - 2017
     Route: 065
     Dates: start: 2013
  11. PANTOPRAZOL RATIO 40MG [Concomitant]
     Dosage: PRESCRIPTION IN 2016 DOCUMENTED
     Route: 065
     Dates: start: 2016
  12. LEVOTHYROXINE SODIUM\POTASSIUM IODIDE [Concomitant]
     Active Substance: LEVOTHYROXINE SODIUM\POTASSIUM IODIDE
     Dosage: 1 DF:75 MICROG LEVOTHYROXINE AND 196,2 MICROG POTASSIUM IODIDE, PRESCRIPTION 2013 - 2018 DOCUMENTED
     Route: 065
     Dates: start: 2013
  13. NOVAMINSULFON LICHTEN 500MG [Concomitant]
     Dosage: PRESCRIPTION FROM 2013 UNTIL 2018 DOCUMENTED
     Route: 065
  14. VENLAFAXIN ABZ 75MG RET [Concomitant]
     Dosage: PRESCRIBED 20-01-2016
     Route: 065
     Dates: start: 2016
  15. Dermoxin [Concomitant]
     Dosage: PRESCRIPTIONS FROM 2013 - 2017 DOCUMENTED
     Route: 065
     Dates: start: 2013
  16. ESTRIOL [Concomitant]
     Active Substance: ESTRIOL
     Dosage: PRESCRIPTIONS FROM 2013-2018 DOCUMENTED
     Route: 065
     Dates: start: 2013
  17. VENLAFAXIN STADA 75MG RET [Concomitant]
     Dosage: PRESCRIPTION FROM 2013-2015 DOCUMENTED
     Route: 065
     Dates: start: 2013
  18. OMEPRAZOL 40MG IA PHARMA [Concomitant]
     Dosage: PRESCRIBED 20-01-2015
     Route: 065
  19. DALTEPARIN SODIUM [Concomitant]
     Active Substance: DALTEPARIN SODIUM
     Dosage: PRESCRIBED 20-01-2015
     Route: 065
     Dates: start: 2015
  20. ROXI ARISTO 300MG [Concomitant]
     Dosage: PRESCRIBED 09-02-2015
     Route: 065
     Dates: start: 201502
  21. VIANI 50UG/250UG DISKUS [Concomitant]
     Dosage: 1 DF CONTAINS: 50 MICROGRAM SALMETEROL AND 250 MICROGRAM FLUTICASONE, PRESCRIPTIONS FROM 2013 - 2016
     Route: 065
     Dates: start: 2013
  22. OLMESARTAN MEDOXOMIL [Concomitant]
     Active Substance: OLMESARTAN MEDOXOMIL
     Dosage: PRESCRIPTIONS FROM 2013 - 2014
     Route: 065
     Dates: start: 2013
  23. LINOLADIOL N [Concomitant]
     Dosage: PRESCRIBED 31-03-2014
     Route: 065
     Dates: start: 2014
  24. LINOLADIOL H N [Concomitant]
     Dosage: 1 GRAM CONTAINS 50 MIKROGRAMM ESTRADIOL  AND 4 MILLIGRAM PREDNISOLONE, PRESCRIBED 31.03.2014
     Route: 065
     Dates: start: 2014
  25. Clobegalen Slabe [Concomitant]
     Dosage: PRESCRIBED 07-03-2013
     Route: 065
     Dates: start: 201303
  26. ESTRIOL OVULUM FEM JENAPH [Concomitant]
     Dosage: PRESCRIBED 07-03-2013
     Route: 065
     Dates: start: 201303
  27. Candesartan Heumann 16mg [Concomitant]
     Dosage: PRESCRIBED 30.08.2017
     Route: 065
     Dates: start: 2017
  28. Venlafaxin Ratio 75mg [Concomitant]
     Dosage: PRESCRIPTION IN 2017 DOCUMENTED
     Route: 065
     Dates: start: 2017

REACTIONS (12)
  - Bronchial carcinoma [Unknown]
  - Product impurity [Recovered/Resolved]
  - Fear of disease [Not Recovered/Not Resolved]
  - Sleep disorder [Not Recovered/Not Resolved]
  - Palpitations [Not Recovered/Not Resolved]
  - Emotional distress [Not Recovered/Not Resolved]
  - Quality of life decreased [Not Recovered/Not Resolved]
  - Mental disorder [Not Recovered/Not Resolved]
  - Anxiety [Not Recovered/Not Resolved]
  - Panic attack [Not Recovered/Not Resolved]
  - Movement disorder [Not Recovered/Not Resolved]
  - Dyspnoea [Not Recovered/Not Resolved]

NARRATIVE: CASE EVENT DATE: 20120101
